FAERS Safety Report 11147276 (Version 1)
Quarter: 2015Q2

REPORT INFORMATION
  Report Type: Report from Study
  Country: US (occurrence: US)
  Receive Date: 20150528
  Receipt Date: 20150528
  Transmission Date: 20150821
  Serious: Yes (Other)
  Sender: FDA-Public Use
  Company Number: US-SA-2015SA005679

PATIENT
  Age: 33 Year
  Sex: Female

DRUGS (4)
  1. AUBAGIO [Suspect]
     Active Substance: TERIFLUNOMIDE
     Indication: MULTIPLE SCLEROSIS
     Route: 048
     Dates: end: 201501
  2. AUBAGIO [Suspect]
     Active Substance: TERIFLUNOMIDE
     Indication: MULTIPLE SCLEROSIS
     Route: 048
     Dates: start: 20141231, end: 20150111
  3. AUBAGIO [Suspect]
     Active Substance: TERIFLUNOMIDE
     Indication: MULTIPLE SCLEROSIS
     Route: 048
     Dates: start: 20141223, end: 20141230
  4. AUBAGIO [Suspect]
     Active Substance: TERIFLUNOMIDE
     Indication: MULTIPLE SCLEROSIS
     Route: 048
     Dates: start: 201501

REACTIONS (15)
  - Pain [Unknown]
  - Heart rate increased [Unknown]
  - Diarrhoea [Recovered/Resolved]
  - Hypertension [Unknown]
  - Vision blurred [Not Recovered/Not Resolved]
  - Nausea [Recovered/Resolved]
  - Urinary tract infection [Unknown]
  - Migraine [Not Recovered/Not Resolved]
  - Bladder disorder [Unknown]
  - Multiple sclerosis relapse [Unknown]
  - Memory impairment [Unknown]
  - Pyrexia [Recovering/Resolving]
  - Muscle spasms [Unknown]
  - Sinusitis [Recovering/Resolving]
  - Seizure [Unknown]

NARRATIVE: CASE EVENT DATE: 201412
